FAERS Safety Report 20493248 (Version 1)
Quarter: 2022Q1

REPORT INFORMATION
  Report Type: Spontaneous
  Country: US (occurrence: US)
  Receive Date: 20220220
  Receipt Date: 20220220
  Transmission Date: 20220424
  Serious: No
  Sender: FDA-Public Use
  Company Number: US-ELI_LILLY_AND_COMPANY-US202202006635

PATIENT
  Sex: Female

DRUGS (2)
  1. CYMBALTA [Suspect]
     Active Substance: DULOXETINE HYDROCHLORIDE
     Indication: Antidepressant therapy
     Dosage: UNK UNK, UNKNOWN
     Route: 065
  2. LIVALO [Suspect]
     Active Substance: PITAVASTATIN CALCIUM
     Indication: Blood cholesterol increased
     Dosage: UNK UNK, UNKNOWN
     Route: 065

REACTIONS (5)
  - Neuralgia [Unknown]
  - Fibromyalgia [Unknown]
  - Hypothyroidism [Unknown]
  - Myalgia [Unknown]
  - Malaise [Unknown]
